FAERS Safety Report 22714843 (Version 2)
Quarter: 2023Q4

REPORT INFORMATION
  Report Type: Spontaneous
  Country: US (occurrence: US)
  Receive Date: 20230718
  Receipt Date: 20231127
  Transmission Date: 20240110
  Serious: No
  Sender: FDA-Public Use
  Company Number: US-BRISTOL-MYERS SQUIBB COMPANY-2023-100741

PATIENT
  Age: 66 Year
  Sex: Male
  Weight: 93.44 kg

DRUGS (1)
  1. REVLIMID [Suspect]
     Active Substance: LENALIDOMIDE
     Indication: Follicular lymphoma
     Dosage: FREQUENCY: DAILY FOR 21DAYS
     Route: 048
     Dates: start: 20220610

REACTIONS (3)
  - Diarrhoea [Not Recovered/Not Resolved]
  - Insomnia [Unknown]
  - Rash pruritic [Unknown]

NARRATIVE: CASE EVENT DATE: 20230601
